FAERS Safety Report 16164794 (Version 1)
Quarter: 2019Q2

REPORT INFORMATION
  Report Type: Spontaneous
  Country: CA (occurrence: CA)
  Receive Date: 20190405
  Receipt Date: 20190405
  Transmission Date: 20190711
  Serious: Yes (Other)
  Sender: FDA-Public Use
  Company Number: CA-PFIZER INC-2019130571

PATIENT
  Age: 33 Year
  Sex: Female

DRUGS (26)
  1. DEPO-PROVERA [Suspect]
     Active Substance: MEDROXYPROGESTERONE ACETATE
     Indication: ENDOMETRIOSIS
     Dosage: UNK
     Dates: start: 1995
  2. DEPO-PROVERA [Suspect]
     Active Substance: MEDROXYPROGESTERONE ACETATE
     Dosage: 150 ML, EVERY 3 MONTHS
     Dates: start: 20020315
  3. GEN-VERAPAMIL [Concomitant]
     Dosage: 240 MG, UNK
  4. DEPO-PROVERA [Suspect]
     Active Substance: MEDROXYPROGESTERONE ACETATE
     Dosage: 1 ML, UNK
     Route: 030
     Dates: start: 19980404
  5. MAXALT [Concomitant]
     Active Substance: RIZATRIPTAN BENZOATE
     Indication: MIGRAINE
     Dosage: 10 MG, WAFFER
  6. TYLENOL WITH CODEINE [Concomitant]
     Active Substance: ACETAMINOPHEN\CODEINE PHOSPHATE
     Indication: HEADACHE
  7. ACCUTANE [Concomitant]
     Active Substance: ISOTRETINOIN
     Dosage: 10 MG, UNK
  8. DEPO-PROVERA [Suspect]
     Active Substance: MEDROXYPROGESTERONE ACETATE
     Dosage: 1 ML, UNK
     Route: 030
     Dates: start: 19980723
  9. DEPO-PROVERA [Suspect]
     Active Substance: MEDROXYPROGESTERONE ACETATE
     Dosage: 1 ML, UNK
     Route: 030
     Dates: start: 19990426
  10. VIBRAMYCIN [DOXYCYCLINE HYCLATE] [Concomitant]
  11. MINOCIN [Concomitant]
     Active Substance: MINOCYCLINE HYDROCHLORIDE
     Dosage: 50 MG, UNK
  12. ACCUTANE [Concomitant]
     Active Substance: ISOTRETINOIN
     Dosage: 40 MG, UNK
  13. DEPO-PROVERA [Suspect]
     Active Substance: MEDROXYPROGESTERONE ACETATE
     Dosage: 1 ML, UNK
     Route: 030
     Dates: start: 19981022
  14. GEN-VERAPAMIL [Concomitant]
     Dosage: 120 MG, UNK
  15. ARTHROTEC [Concomitant]
     Active Substance: DICLOFENAC SODIUM\MISOPROSTOL
     Dosage: 50 MG/200 MCG
  16. RETIN-A [Concomitant]
     Active Substance: TRETINOIN
     Dosage: 0.025 %, UNK
  17. DEPO-PROVERA [Suspect]
     Active Substance: MEDROXYPROGESTERONE ACETATE
     Dosage: 1 ML, UNK
     Route: 030
     Dates: start: 19990125
  18. DEPO-PROVERA [Suspect]
     Active Substance: MEDROXYPROGESTERONE ACETATE
     Dosage: 1 ML, UNK
     Route: 030
     Dates: start: 19990707
  19. FOSAMAX [Concomitant]
     Active Substance: ALENDRONATE SODIUM
     Dosage: 10 MG, 1X/DAY
     Dates: start: 20020925
  20. TYLENOL WITH CODEINE [Concomitant]
     Active Substance: ACETAMINOPHEN\CODEINE PHOSPHATE
     Indication: BACK PAIN
  21. VERAPAMIL [Concomitant]
     Active Substance: VERAPAMIL HYDROCHLORIDE
     Dosage: UNK
     Dates: start: 20020313
  22. MIGRANAL [Concomitant]
     Active Substance: DIHYDROERGOTAMINE MESYLATE
  23. DEPO-PROVERA [Suspect]
     Active Substance: MEDROXYPROGESTERONE ACETATE
     Dosage: 150 MG/ML, UNK
     Dates: start: 20020827, end: 2002
  24. CELEBREX [Concomitant]
     Active Substance: CELECOXIB
     Dosage: 200 MG, UNK
     Dates: start: 20020313
  25. APO CEPHALEXIN [Concomitant]
     Active Substance: CEPHALEXIN
     Dosage: 250 MG, UNK
  26. APO DOXY [Concomitant]
     Active Substance: DOXYCYCLINE HYDROCHLORIDE
     Dosage: 100 MG, UNK

REACTIONS (4)
  - Product use in unapproved indication [Unknown]
  - Patella fracture [Unknown]
  - Osteopenia [Unknown]
  - Osteoporosis [Unknown]

NARRATIVE: CASE EVENT DATE: 200207
